FAERS Safety Report 16010079 (Version 1)
Quarter: 2019Q1

REPORT INFORMATION
  Report Type: Spontaneous
  Country: ES (occurrence: ES)
  Receive Date: 20190225
  Receipt Date: 20190225
  Transmission Date: 20190418
  Serious: Yes (Other)
  Sender: FDA-Public Use
  Company Number: ES-AMGEN-ESPSP2019026683

PATIENT
  Age: 72 Year
  Sex: Female

DRUGS (4)
  1. PROLIA [Suspect]
     Active Substance: DENOSUMAB
     Indication: HIP FRACTURE
     Dosage: 60 MG, Q6MO
     Route: 058
     Dates: start: 20180219, end: 20190129
  2. SIMVASTATIN. [Suspect]
     Active Substance: SIMVASTATIN
     Indication: DYSLIPIDAEMIA
     Dosage: 10 MG, QD 1 EVERY 24 HOURS. PREVIOUSLY, SINCE 08/MARCH/2017 UNTIL 15/MAY/2017 HAD SIMVATASTIN PLANNE
     Route: 048
     Dates: start: 20170515
  3. DELTIUS [Concomitant]
     Active Substance: CHOLECALCIFEROL
     Indication: HIP FRACTURE
     Dosage: 1 DF, QMO
     Route: 048
  4. AMERIDE [Concomitant]
     Indication: HYPERTENSION
     Dosage: 0.5 DF, QD 0.5 EVERY 24 HOURS. (1/2-0-0)
     Route: 048

REACTIONS (1)
  - Neuropathy peripheral [Unknown]

NARRATIVE: CASE EVENT DATE: 20180901
